FAERS Safety Report 9217944 (Version 3)
Quarter: 2013Q3

REPORT INFORMATION
  Report Type: Spontaneous
  Country: BR (occurrence: BR)
  Receive Date: 20130408
  Receipt Date: 20130826
  Transmission Date: 20140515
  Serious: Yes (Death, Hospitalization, Other)
  Sender: FDA-Public Use
  Company Number: PHHY2013BR033439

PATIENT
  Sex: Male

DRUGS (4)
  1. TEGRETOL [Suspect]
     Indication: CONVULSION
     Dosage: 5 ML, DAILY
     Route: 048
  2. DEPAKENE [Suspect]
     Indication: CONVULSION
     Dosage: 5 ML, UNK
  3. RIVOTRIL [Suspect]
     Indication: CONVULSION
     Dosage: 5 DRP, DAILY
     Dates: end: 2007
  4. RIVOTRIL [Suspect]
     Dosage: 3 DROPS A DAY
     Dates: end: 2007

REACTIONS (14)
  - Cachexia [Fatal]
  - Pneumonia [Fatal]
  - Dyspnoea [Fatal]
  - Respiratory arrest [Unknown]
  - Enzyme abnormality [Unknown]
  - Dysphagia [Unknown]
  - Gastritis haemorrhagic [Unknown]
  - Nephrolithiasis [Unknown]
  - Bone atrophy [Unknown]
  - Blindness [Unknown]
  - Convulsion [Unknown]
  - Secretion discharge [Unknown]
  - Somnolence [Unknown]
  - Drug ineffective [Unknown]
